FAERS Safety Report 21193553 (Version 1)
Quarter: 2022Q3

REPORT INFORMATION
  Report Type: Spontaneous
  Country: US (occurrence: US)
  Receive Date: 20220810
  Receipt Date: 20220810
  Transmission Date: 20221027
  Serious: No
  Sender: FDA-Public Use
  Company Number: US-009507513-2208USA002258

PATIENT
  Sex: Female

DRUGS (1)
  1. ZINPLAVA [Suspect]
     Active Substance: BEZLOTOXUMAB
     Indication: Clostridium difficile infection
     Dosage: 1 DOSAGE FORM
     Dates: start: 202205

REACTIONS (3)
  - Symptom recurrence [Unknown]
  - Clostridium test positive [Unknown]
  - Drug ineffective for unapproved indication [Unknown]

NARRATIVE: CASE EVENT DATE: 20220101
